FAERS Safety Report 17412038 (Version 2)
Quarter: 2021Q1

REPORT INFORMATION
  Report Type: Spontaneous
  Country: US (occurrence: US)
  Receive Date: 20200213
  Receipt Date: 20210210
  Transmission Date: 20210419
  Serious: No
  Sender: FDA-Public Use
  Company Number: US-AUROBINDO-AUR-APL-2019-107482

PATIENT
  Age: 4 Year
  Sex: Male

DRUGS (1)
  1. AMOXICILLIN AND CLAVULANATE POTASSIUM [Suspect]
     Active Substance: AMOXICILLIN\CLAVULANATE POTASSIUM
     Indication: EAR INFECTION
     Dosage: 11.3 MILLILITER, TWO TIMES A DAY
     Route: 065
     Dates: start: 20191214

REACTIONS (4)
  - Drug ineffective [Unknown]
  - Product colour issue [Unknown]
  - Product storage error [Unknown]
  - Product container seal issue [Unknown]

NARRATIVE: CASE EVENT DATE: 20191219
